FAERS Safety Report 7917567-9 (Version None)
Quarter: 2011Q4

REPORT INFORMATION
  Report Type: 
  Country: None (occurrence: None)
  Receive Date: 20111116
  Receipt Date: 20111021
  Transmission Date: 20120403
  Serious: Yes (Disabling)
  Sender: FDA-Public Use
  Company Number: BR-NOVOPROD-337163

PATIENT

DRUGS (2)
  1. PREDNISOLONE [Concomitant]
     Dosage: 2 TAB, QD
     Dates: start: 20111005, end: 20111018
  2. VICTOZA [Suspect]
     Indication: BLOOD GLUCOSE ABNORMAL
     Dosage: 0.6 MG, QD
     Route: 065
     Dates: start: 20110915

REACTIONS (1)
  - HYPOACUSIS [None]
